FAERS Safety Report 11802319 (Version 1)
Quarter: 2015Q4

REPORT INFORMATION
  Report Type: Spontaneous
  Country: US (occurrence: None)
  Receive Date: 20151203
  Receipt Date: 20151203
  Transmission Date: 20160305
  Serious: Yes (Hospitalization)
  Sender: FDA-Public Use
  Company Number: None

PATIENT
  Age: 76 Year
  Sex: Female

DRUGS (1)
  1. AFINITOR [Suspect]
     Active Substance: EVEROLIMUS
     Indication: CARCINOID TUMOUR OF THE GASTROINTESTINAL TRACT
     Route: 048
     Dates: start: 20141129

REACTIONS (2)
  - Swelling [None]
  - Heart rate irregular [None]

NARRATIVE: CASE EVENT DATE: 201510
